FAERS Safety Report 4528564-8 (Version None)
Quarter: 2004Q4

REPORT INFORMATION
  Report Type: 
  Country: None (occurrence: None)
  Receive Date: 20041216
  Receipt Date: 20040909
  Transmission Date: 20050328
  Serious: Yes (Other)
  Sender: FDA-Public Use
  Company Number: PHBS2004JP11933

PATIENT
  Age: 50 Year
  Sex: Male

DRUGS (3)
  1. RENIVACE [Concomitant]
     Route: 048
  2. GLEEVEC [Suspect]
     Indication: CHRONIC MYELOID LEUKAEMIA
     Dosage: 400 MG/DAY
     Route: 048
  3. GLEEVEC [Suspect]
     Dosage: 600 MG/DAY
     Route: 048

REACTIONS (3)
  - OSTEONECROSIS [None]
  - PURULENT DISCHARGE [None]
  - TRANSPLANT [None]
